FAERS Safety Report 25903926 (Version 1)
Quarter: 2025Q4

REPORT INFORMATION
  Report Type: Spontaneous
  Country: EU (occurrence: EU)
  Receive Date: 20251010
  Receipt Date: 20251010
  Transmission Date: 20260118
  Serious: Yes (Other)
  Sender: SANDOZ
  Company Number: EU-SANDOZ-SDZ2025IT074270

PATIENT
  Age: 64 Year
  Sex: Female

DRUGS (4)
  1. BORTEZOMIB [Suspect]
     Active Substance: BORTEZOMIB
     Indication: Thrombotic thrombocytopenic purpura
     Dosage: 1.3 MG ((DAYS 1-4-8-11) )
     Route: 065
  2. BORTEZOMIB [Suspect]
     Active Substance: BORTEZOMIB
     Dosage: REDUCED DOSE OF 1 MG/MQ
     Route: 065
  3. CYCLOPHOSPHAMIDE [Concomitant]
     Active Substance: CYCLOPHOSPHAMIDE
     Indication: Thrombotic thrombocytopenic purpura
     Dosage: 500 MG
     Route: 065
  4. RITUXIMAB [Concomitant]
     Active Substance: RITUXIMAB
     Indication: Thrombotic thrombocytopenic purpura
     Dosage: ONCE A WEEK FOR 4 WEEKS PLUS 2 MONTHLY INFUSIONS AS MAINTENANCE (SIX INFUSIONS IN TOTAL).
     Route: 065

REACTIONS (2)
  - Neurotoxicity [Recovering/Resolving]
  - Product use in unapproved indication [Unknown]
